FAERS Safety Report 13141095 (Version 3)
Quarter: 2017Q1

REPORT INFORMATION
  Report Type: Spontaneous
  Country: DE (occurrence: DE)
  Receive Date: 20170123
  Receipt Date: 20170203
  Transmission Date: 20170428
  Serious: Yes (Hospitalization, Other)
  Sender: FDA-Public Use
  Company Number: DE-GILEAD-2017-0254249

PATIENT
  Sex: Female

DRUGS (4)
  1. CANDECOR [Concomitant]
  2. AMISULPRID [Concomitant]
     Active Substance: AMISULPRIDE
  3. EPCLUSA [Suspect]
     Active Substance: SOFOSBUVIR\VELPATASVIR
     Indication: CHRONIC HEPATITIS C
     Dosage: UNK
     Route: 048
     Dates: start: 20160926, end: 20161218
  4. L-THYROXIN [Concomitant]
     Active Substance: LEVOTHYROXINE SODIUM

REACTIONS (1)
  - Breast cancer [Not Recovered/Not Resolved]

NARRATIVE: CASE EVENT DATE: 20161201
